FAERS Safety Report 7776298-9 (Version None)
Quarter: 2011Q3

REPORT INFORMATION
  Report Type: 
  Country: None (occurrence: None)
  Receive Date: 20110921
  Receipt Date: 20110921
  Transmission Date: 20111222
  Serious: Yes (Other)
  Sender: FDA-Public Use
  Company Number: None

PATIENT
  Age: 52 Year
  Sex: Male
  Weight: 75 kg

DRUGS (2)
  1. INCIVEK [Suspect]
     Indication: HEPATITIS C
     Dosage: 750 MG TID ORAL
     Route: 048
     Dates: start: 20110823
  2. RIBASPHERE [Suspect]
     Dosage: 600 MG BID ORAL
     Route: 048
     Dates: start: 20110823

REACTIONS (2)
  - RECTAL HAEMORRHAGE [None]
  - FATIGUE [None]
